FAERS Safety Report 7234068-4 (Version None)
Quarter: 2011Q1

REPORT INFORMATION
  Report Type: 
  Country: None (occurrence: None)
  Receive Date: 20110119
  Receipt Date: 20110117
  Transmission Date: 20110831
  Serious: Yes (Other)
  Sender: FDA-Public Use
  Company Number: US-ABBOTT-11P-163-0697872-00

PATIENT
  Sex: Male
  Weight: 87.168 kg

DRUGS (5)
  1. ALBUTEROL [Concomitant]
     Indication: PRODUCT USED FOR UNKNOWN INDICATION
     Route: 055
     Dates: start: 20101227
  2. NEXIUM [Concomitant]
     Indication: PRODUCT USED FOR UNKNOWN INDICATION
     Dates: start: 20101227
  3. UNKNOWN TESTOSTERONE MEDICATION [Concomitant]
     Indication: BLOOD TESTOSTERONE DECREASED
     Dates: start: 20101227
  4. NIASPAN [Suspect]
     Indication: BLOOD CHOLESTEROL INCREASED
     Route: 048
     Dates: start: 20101227
  5. FISH OIL [Concomitant]
     Indication: BLOOD CHOLESTEROL INCREASED
     Dates: start: 20101227

REACTIONS (6)
  - DIZZINESS [None]
  - INGUINAL HERNIA [None]
  - LOSS OF CONSCIOUSNESS [None]
  - LOCAL SWELLING [None]
  - SKIN WARM [None]
  - PARAESTHESIA [None]
